FAERS Safety Report 6076888-8 (Version None)
Quarter: 2009Q1

REPORT INFORMATION
  Report Type: 
  Country: None (occurrence: None)
  Receive Date: 20090213
  Receipt Date: 20090113
  Transmission Date: 20090719
  Serious: No
  Sender: FDA-Public Use
  Company Number: US-BAYER-200818394NA

PATIENT
  Age: 24 Year
  Sex: Female
  Weight: 52 kg

DRUGS (2)
  1. YASMIN [Suspect]
     Indication: CONTRACEPTION
     Route: 048
     Dates: start: 20060101
  2. STEROID [Concomitant]
     Indication: JOINT INJURY

REACTIONS (2)
  - MENSTRUATION DELAYED [None]
  - PREGNANCY ON ORAL CONTRACEPTIVE [None]
